FAERS Safety Report 6590603-0 (Version None)
Quarter: 2010Q1

REPORT INFORMATION
  Report Type: 
  Country: None (occurrence: None)
  Receive Date: 20100212
  Receipt Date: 20100125
  Transmission Date: 20100710
  Serious: Yes (Other)
  Sender: FDA-Public Use
  Company Number: 230107J10USA

PATIENT
  Age: 52 Year
  Sex: Female
  Weight: 50 kg

DRUGS (4)
  1. REBIF [Suspect]
     Indication: MULTIPLE SCLEROSIS
     Dosage: 44 MCG, 3 IN 1 WEEKS,  SUBCUTANEOUS
     Route: 058
     Dates: start: 20070418, end: 20091001
  2. PROVIGL (MODAFINIL) [Concomitant]
  3. LUNESTA (ALL OTHER THERAPUTIC PRODUCTS) [Concomitant]
  4. AMITRIPTYLINE HCL [Concomitant]

REACTIONS (6)
  - CARTILAGE INJURY [None]
  - INGUINAL HERNIA [None]
  - MENISCUS LESION [None]
  - PATELLA FRACTURE [None]
  - TIBIA FRACTURE [None]
  - WHITE BLOOD CELL COUNT DECREASED [None]
